FAERS Safety Report 5734409-0 (Version None)
Quarter: 2008Q2

REPORT INFORMATION
  Report Type: 
  Country: None (occurrence: None)
  Receive Date: 20080508
  Receipt Date: 20080508
  Transmission Date: 20081010
  Serious: Yes (Other)
  Sender: FDA-Public Use
  Company Number: None

PATIENT
  Age: 80 Year
  Sex: Female
  Weight: 56.6996 kg

DRUGS (1)
  1. CREST PRO-HEALTH-NIGHT- PROCTOR AND GAMBLE [Suspect]
     Indication: DENTAL CARE
     Dosage: ABOUT 2 TABLESPOONS 1 DAILY DENTAL
     Route: 004
     Dates: start: 20080312, end: 20080507

REACTIONS (1)
  - TOOTH DISCOLOURATION [None]
